FAERS Safety Report 15957707 (Version 1)
Quarter: 2019Q1

REPORT INFORMATION
  Report Type: Spontaneous
  Country: US (occurrence: US)
  Receive Date: 20190213
  Receipt Date: 20190213
  Transmission Date: 20190417
  Serious: No
  Sender: FDA-Public Use
  Company Number: US-SA-2019SA039141

PATIENT
  Sex: Female

DRUGS (1)
  1. KEVZARA [Suspect]
     Active Substance: SARILUMAB
     Route: 058

REACTIONS (3)
  - Injection site erythema [Not Recovered/Not Resolved]
  - Injection site discomfort [Not Recovered/Not Resolved]
  - Injection site swelling [Not Recovered/Not Resolved]
